FAERS Safety Report 20629951 (Version 1)
Quarter: 2022Q1

REPORT INFORMATION
  Report Type: Report from Study
  Country: US (occurrence: US)
  Receive Date: 20220324
  Receipt Date: 20220324
  Transmission Date: 20220423
  Serious: Yes (Other)
  Sender: FDA-Public Use
  Company Number: US-ABBVIE-22K-163-4326633-00

PATIENT
  Sex: Female

DRUGS (1)
  1. IMBRUVICA [Suspect]
     Active Substance: IBRUTINIB
     Indication: Chronic lymphocytic leukaemia
     Route: 048
     Dates: start: 201804

REACTIONS (6)
  - Limb operation [Unknown]
  - Pain [Unknown]
  - Vomiting [Unknown]
  - Malaise [Not Recovered/Not Resolved]
  - Herpes zoster [Unknown]
  - Swelling [Unknown]
